FAERS Safety Report 11223988 (Version 2)
Quarter: 2015Q2

REPORT INFORMATION
  Report Type: Spontaneous
  Country: NL (occurrence: NL)
  Receive Date: 20150629
  Receipt Date: 20150630
  Transmission Date: 20150821
  Serious: Yes (Death, Other)
  Sender: FDA-Public Use
  Company Number: PHHY2015NL074428

PATIENT
  Age: 22 Year
  Sex: Male

DRUGS (7)
  1. VALPROIC ACID. [Suspect]
     Active Substance: VALPROIC ACID
     Indication: SEIZURE
     Route: 065
  2. CARBAMAZEPINE. [Suspect]
     Active Substance: CARBAMAZEPINE
     Indication: SEIZURE
     Dosage: 300 MG, UNK
     Route: 065
  3. CARBAMAZEPINE. [Suspect]
     Active Substance: CARBAMAZEPINE
     Dosage: 100 MG, UNK
     Route: 065
  4. LEVETIRACETAM. [Suspect]
     Active Substance: LEVETIRACETAM
     Indication: SEIZURE
     Route: 065
  5. CLOBAZAM [Suspect]
     Active Substance: CLOBAZAM
     Indication: SEIZURE
     Route: 065
  6. STIRIPENTOL [Suspect]
     Active Substance: STIRIPENTOL
     Indication: SEIZURE
     Route: 065
  7. ZONISAMIDE. [Suspect]
     Active Substance: ZONISAMIDE
     Indication: SEIZURE
     Route: 065

REACTIONS (3)
  - Tonic convulsion [Unknown]
  - Bronchopneumonia [Fatal]
  - Status epilepticus [Unknown]
